FAERS Safety Report 23588881 (Version 1)
Quarter: 2024Q1

REPORT INFORMATION
  Report Type: Report from Study
  Country: US (occurrence: US)
  Receive Date: 20240304
  Receipt Date: 20240304
  Transmission Date: 20240409
  Serious: Yes (Other)
  Sender: FDA-Public Use
  Company Number: US-TEVA-VS-3163457

PATIENT
  Sex: Female

DRUGS (18)
  1. AUSTEDO XR [Suspect]
     Active Substance: DEUTETRABENAZINE
     Indication: Generalised anxiety disorder
     Route: 048
  2. HYDROXYZINE [Concomitant]
     Active Substance: HYDROXYZINE HYDROCHLORIDE
     Route: 065
  3. Meclizine HC [Concomitant]
     Route: 065
  4. MONTELUKAST [Concomitant]
     Active Substance: MONTELUKAST SODIUM
     Route: 065
  5. TOPAMAX [Concomitant]
     Active Substance: TOPIRAMATE
     Route: 065
  6. ATENOLOL [Concomitant]
     Active Substance: ATENOLOL
     Route: 065
  7. BACLOFEN [Concomitant]
     Active Substance: BACLOFEN
     Route: 065
  8. BENZTROPINE [Concomitant]
     Active Substance: BENZTROPINE
     Route: 065
  9. DICLOFENAC [Concomitant]
     Active Substance: DICLOFENAC
     Route: 065
  10. DIVALPROEX SODIUM [Concomitant]
     Active Substance: DIVALPROEX SODIUM
     Route: 065
  11. DULOXETINE [Concomitant]
     Active Substance: DULOXETINE
     Route: 065
  12. LEVOCETIRIZINE [Concomitant]
     Active Substance: LEVOCETIRIZINE
     Route: 065
  13. LURASIDONE [Concomitant]
     Active Substance: LURASIDONE
     Route: 065
  14. Methocarbamo [Concomitant]
     Route: 065
  15. PREGABALIN [Concomitant]
     Active Substance: PREGABALIN
     Route: 065
  16. PROPRANOLOL [Concomitant]
     Active Substance: PROPRANOLOL HYDROCHLORIDE
     Route: 065
  17. SUMATRIPTAN [Concomitant]
     Active Substance: SUMATRIPTAN
     Route: 065
  18. TRAZODONE [Concomitant]
     Active Substance: TRAZODONE HYDROCHLORIDE
     Route: 065

REACTIONS (9)
  - Dyskinesia [Not Recovered/Not Resolved]
  - Tremor [Not Recovered/Not Resolved]
  - Tongue movement disturbance [Not Recovered/Not Resolved]
  - Depression [Not Recovered/Not Resolved]
  - Fatigue [Not Recovered/Not Resolved]
  - Asthenia [Not Recovered/Not Resolved]
  - Initial insomnia [Not Recovered/Not Resolved]
  - Decreased appetite [Not Recovered/Not Resolved]
  - Product use in unapproved indication [Unknown]
